FAERS Safety Report 19600519 (Version 1)
Quarter: 2021Q3

REPORT INFORMATION
  Report Type: Spontaneous
  Country: US (occurrence: US)
  Receive Date: 20210723
  Receipt Date: 20210723
  Transmission Date: 20211014
  Serious: Yes (Hospitalization)
  Sender: FDA-Public Use
  Company Number: US-STRIDES ARCOLAB LIMITED-2020SP013156

PATIENT
  Age: 52 Year
  Sex: Female

DRUGS (4)
  1. SILDENAFIL. [Suspect]
     Active Substance: SILDENAFIL
     Indication: SKIN ULCER
     Dosage: UNK
     Route: 065
  2. NITROGLYCERIN. [Suspect]
     Active Substance: NITROGLYCERIN
     Indication: SKIN ULCER
     Dosage: UNK
     Route: 061
  3. MYCOPHENOLATE MOFETIL. [Suspect]
     Active Substance: MYCOPHENOLATE MOFETIL
     Indication: SKIN ULCER
     Dosage: UNK
     Route: 065
  4. BOTULINUM TOXIN [Suspect]
     Active Substance: BOTULINUM TOXIN NOS
     Indication: SKIN ULCER
     Dosage: UNK

REACTIONS (2)
  - Off label use [Unknown]
  - Drug ineffective [Unknown]
